FAERS Safety Report 5138665-1 (Version None)
Quarter: 2006Q4

REPORT INFORMATION
  Report Type: 
  Country: None (occurrence: None)
  Receive Date: 20061026
  Receipt Date: 20061026
  Transmission Date: 20070319
  Serious: Yes (Hospitalization)
  Sender: FDA-Public Use
  Company Number: None

PATIENT
  Age: 80 Year
  Sex: Female
  Weight: 76 kg

DRUGS (11)
  1. LISINOPRIL [Suspect]
     Indication: HYPERTENSION
     Dosage: 2.5 MG DAILY PO
     Route: 048
     Dates: start: 20030101
  2. DUONEBS [Concomitant]
  3. ZYPREXA [Concomitant]
  4. CEFTIN [Concomitant]
  5. ADVAIR DISKUS 100/50 [Concomitant]
  6. GUAIFENESIN [Concomitant]
  7. LEVAQUIN [Concomitant]
  8. REMERON [Concomitant]
  9. NICOTINE [Concomitant]
  10. ZANTAC [Concomitant]
  11. COREG [Concomitant]

REACTIONS (15)
  - ANGINA PECTORIS [None]
  - ANGIONEUROTIC OEDEMA [None]
  - ASTHENIA [None]
  - CEREBROVASCULAR ACCIDENT [None]
  - CONVULSION [None]
  - DROOLING [None]
  - DRUG HYPERSENSITIVITY [None]
  - FACIAL PALSY [None]
  - HYPOTENSION [None]
  - LOSS OF CONSCIOUSNESS [None]
  - POSTICTAL PARALYSIS [None]
  - SPEECH DISORDER [None]
  - SWOLLEN TONGUE [None]
  - TOOTH EXTRACTION [None]
  - TREMOR [None]
